FAERS Safety Report 6086848-9 (Version None)
Quarter: 2009Q1

REPORT INFORMATION
  Report Type: 
  Country: None (occurrence: None)
  Receive Date: 20090217
  Receipt Date: 20090202
  Transmission Date: 20090719
  Serious: Yes (Death, Other)
  Sender: FDA-Public Use
  Company Number: CHPA2009US01821

PATIENT
  Age: 37 Year
  Sex: Male

DRUGS (3)
  1. ACETYLSALICYLIC ACID SRT [Suspect]
     Dosage: 97500 DF, ORAL
     Route: 048
  2. ACETAMINOPHEN (PARACETAMOL), ACETYLSAL ACID, CAFFEINE CITRATE (NCH) (C [Suspect]
     Dosage: 250 TABLETS, ORAL
     Route: 048
  3. ASPIRIN [Suspect]
     Dosage: 14580 MG, ORAL
     Route: 048

REACTIONS (11)
  - AGGRESSION [None]
  - CARDIAC ARREST [None]
  - COMPLETED SUICIDE [None]
  - EROSIVE OESOPHAGITIS [None]
  - FLUSHING [None]
  - HEART RATE DECREASED [None]
  - HYPERHIDROSIS [None]
  - HYPERTENSION [None]
  - OVERDOSE [None]
  - PULMONARY CONGESTION [None]
  - TACHYCARDIA [None]
